FAERS Safety Report 4753763-X (Version None)
Quarter: 2005Q3

REPORT INFORMATION
  Report Type: 
  Country: None (occurrence: None)
  Receive Date: 20050817
  Receipt Date: 20050808
  Transmission Date: 20060218
  Serious: Yes (Death)
  Sender: FDA-Public Use
  Company Number: 2005BH001095

PATIENT
  Age: 42 Year
  Sex: Male

DRUGS (1)
  1. SODIUM CHLORIDE 0.9% [Suspect]
     Indication: RENAL FAILURE CHRONIC
     Dosage: IV
     Route: 042

REACTIONS (16)
  - ACTIVATED PARTIAL THROMBOPLASTIN TIME PROLONGED [None]
  - BLOOD ALBUMIN DECREASED [None]
  - CARBON DIOXIDE DECREASED [None]
  - CARDIO-RESPIRATORY ARREST [None]
  - CATHETER SEPSIS [None]
  - DEVICE FAILURE [None]
  - DRUG ADMINISTRATION ERROR [None]
  - HAEMATOCRIT DECREASED [None]
  - HAEMOGLOBIN DECREASED [None]
  - INAPPROPRIATE SCHEDULE OF DRUG ADMINISTRATION [None]
  - INTERNATIONAL NORMALISED RATIO INCREASED [None]
  - PERITONITIS [None]
  - PROTHROMBIN TIME PROLONGED [None]
  - REFUSAL OF TREATMENT BY RELATIVE [None]
  - SEPTIC SHOCK [None]
  - WHITE BLOOD CELL COUNT DECREASED [None]
